FAERS Safety Report 10220473 (Version 2)
Quarter: 2014Q2

REPORT INFORMATION
  Report Type: Spontaneous
  Country: BR (occurrence: BR)
  Receive Date: 20140606
  Receipt Date: 20140606
  Transmission Date: 20141212
  Serious: Yes (Death)
  Sender: FDA-Public Use
  Company Number: BR-PFIZER INC-2014003035

PATIENT
  Sex: Female

DRUGS (1)
  1. SUTENT [Suspect]
     Indication: RENAL CANCER
     Dosage: 50 MG (ONE CAPSULE), 1X/DAY
     Route: 048
     Dates: start: 20131227

REACTIONS (6)
  - Death [Fatal]
  - Oral pain [Unknown]
  - Yellow skin [Unknown]
  - Oropharyngeal pain [Unknown]
  - Nausea [Unknown]
  - Ageusia [Unknown]
